FAERS Safety Report 5480230-0 (Version None)
Quarter: 2007Q4

REPORT INFORMATION
  Report Type: 
  Country: None (occurrence: None)
  Receive Date: 20071009
  Receipt Date: 20071004
  Transmission Date: 20080405
  Serious: Yes (Hospitalization)
  Sender: FDA-Public Use
  Company Number: US-SOLVAY-00207034363

PATIENT
  Age: 29 Year
  Sex: Female
  Weight: 66 kg

DRUGS (2)
  1. VITAMIN AND MINERAL PRENATAL SUPPLEMENT W/ FOLIC ACID CAP [Concomitant]
     Indication: NUTRITIONAL SUPPORT
     Dosage: DAILY DOSE:  UNKNOWN
     Route: 048
  2. PROMETRIUM [Suspect]
     Indication: PROGESTERONE DECREASED
     Dosage: DAILY DOSE:  UNKNOWN
     Route: 048
     Dates: start: 20070809, end: 20070813

REACTIONS (7)
  - BLOOD PRESSURE DECREASED [None]
  - CHEST DISCOMFORT [None]
  - DYSPNOEA [None]
  - HEART RATE DECREASED [None]
  - NAUSEA [None]
  - PANIC ATTACK [None]
  - VENTRICULAR EXTRASYSTOLES [None]
